FAERS Safety Report 12631077 (Version 2)
Quarter: 2016Q3

REPORT INFORMATION
  Report Type: Spontaneous
  Country: US (occurrence: US)
  Receive Date: 20160808
  Receipt Date: 20160808
  Transmission Date: 20161109
  Serious: No
  Sender: FDA-Public Use
  Company Number: US-BEH-2015052168

PATIENT
  Age: 37 Year
  Sex: Female
  Weight: 99 kg

DRUGS (18)
  1. HIZENTRA [Suspect]
     Active Substance: HUMAN IMMUNOGLOBULIN G
     Indication: IMMUNODEFICIENCY COMMON VARIABLE
     Route: 058
  2. CENTRUM COMPLETE [Concomitant]
  3. VITAMIN B [Concomitant]
     Active Substance: VITAMIN B
  4. PROBIOTIC [Concomitant]
     Active Substance: PROBIOTICS NOS
  5. ACETAMINOPHEN 325 MG [Concomitant]
     Active Substance: ACETAMINOPHEN
  6. WELLBUTRIN 150 MG [Concomitant]
  7. CITALOPRAM [Concomitant]
     Active Substance: CITALOPRAM HYDROBROMIDE
  8. FISH OIL [Concomitant]
     Active Substance: FISH OIL
  9. PREMARIN [Concomitant]
     Active Substance: ESTROGENS, CONJUGATED
  10. ADVIL [Concomitant]
     Active Substance: IBUPROFEN
  11. HIZENTRA [Suspect]
     Active Substance: HUMAN IMMUNOGLOBULIN G
     Route: 058
  12. ADDERALL [Concomitant]
     Active Substance: AMPHETAMINE ASPARTATE\AMPHETAMINE SULFATE\DEXTROAMPHETAMINE SACCHARATE\DEXTROAMPHETAMINE SULFATE
  13. CLONAZEPAM 20 MG [Concomitant]
  14. LEVOTHYROXIN 137 MCG [Concomitant]
  15. CALCIUM [Concomitant]
     Active Substance: CALCIUM
  16. DIPHENHYDRAMINE 25 MG [Concomitant]
  17. LIDOCAINE 5 MG [Concomitant]
  18. EPIPEN 0.3 MG [Concomitant]
     Indication: ANAPHYLACTIC REACTION

REACTIONS (4)
  - Nausea [Unknown]
  - Feeling abnormal [Unknown]
  - Pain [Unknown]
  - Pyrexia [Unknown]

NARRATIVE: CASE EVENT DATE: 20150627
